FAERS Safety Report 12206409 (Version 1)
Quarter: 2016Q1

REPORT INFORMATION
  Report Type: Spontaneous
  Country: US (occurrence: US)
  Receive Date: 20160324
  Receipt Date: 20160324
  Transmission Date: 20160526
  Serious: Yes (Other)
  Sender: FDA-Public Use
  Company Number: US-BEH-2016060339

PATIENT
  Age: 28 Year
  Sex: Female
  Weight: 67 kg

DRUGS (12)
  1. HIZENTRA [Suspect]
     Active Substance: HUMAN IMMUNOGLOBULIN G
     Route: 058
  2. AZELASTINE [Concomitant]
     Active Substance: AZELASTINE
  3. FLONASE [Concomitant]
     Active Substance: FLUTICASONE PROPIONATE
  4. MEDROL [Concomitant]
     Active Substance: METHYLPREDNISOLONE
  5. LIDOCAINE. [Concomitant]
     Active Substance: LIDOCAINE
  6. ALBUTEROL SULFATE. [Concomitant]
     Active Substance: ALBUTEROL SULFATE
  7. PROAIR HFA [Concomitant]
     Active Substance: ALBUTEROL SULFATE
  8. EPIPEN [Concomitant]
     Active Substance: EPINEPHRINE
  9. PROAIR HFA [Concomitant]
     Active Substance: ALBUTEROL SULFATE
  10. PREDNISONE. [Concomitant]
     Active Substance: PREDNISONE
  11. HIZENTRA [Suspect]
     Active Substance: HUMAN IMMUNOGLOBULIN G
     Indication: IMMUNODEFICIENCY COMMON VARIABLE
     Route: 058
  12. DIPHENHYDRAMINE. [Concomitant]
     Active Substance: DIPHENHYDRAMINE

REACTIONS (2)
  - Ear infection [Unknown]
  - Respiratory tract infection [Unknown]

NARRATIVE: CASE EVENT DATE: 201603
